FAERS Safety Report 21878346 (Version 1)
Quarter: 2023Q1

REPORT INFORMATION
  Report Type: Spontaneous
  Country: None (occurrence: GB)
  Receive Date: 20230118
  Receipt Date: 20230118
  Transmission Date: 20230418
  Serious: Yes (Other)
  Sender: FDA-Public Use
  Company Number: GB-Breckenridge Pharmaceutical, Inc.-2136827

PATIENT
  Sex: Female

DRUGS (9)
  1. OMEPRAZOLE [Suspect]
     Active Substance: OMEPRAZOLE
     Route: 048
  2. ZOMIG [Suspect]
     Active Substance: ZOLMITRIPTAN
  3. METOCLOPRAMIDE [Concomitant]
     Active Substance: METOCLOPRAMIDE
  4. LORAZEPAM [Concomitant]
     Active Substance: LORAZEPAM
  5. DIAZEPAM [Concomitant]
     Active Substance: DIAZEPAM
  6. PREDNISOLONE [Concomitant]
     Active Substance: PREDNISOLONE
  7. IBUPROFEN [Concomitant]
     Active Substance: IBUPROFEN
  8. DEXAMETHASONE [Concomitant]
     Active Substance: DEXAMETHASONE
  9. ACETAMINOPHEN [Concomitant]
     Active Substance: ACETAMINOPHEN

REACTIONS (2)
  - Breast cancer [Unknown]
  - Drug interaction [Unknown]
